FAERS Safety Report 6163318-0 (Version None)
Quarter: 2009Q2

REPORT INFORMATION
  Report Type: 
  Country: None (occurrence: None)
  Receive Date: 20090422
  Receipt Date: 20090414
  Transmission Date: 20091009
  Serious: Yes (Other)
  Sender: FDA-Public Use
  Company Number: TW-ABBOTT-09P-153-0568037-00

PATIENT
  Sex: Female

DRUGS (2)
  1. REDUCTIL 15MG [Suspect]
     Indication: WEIGHT CONTROL
     Route: 048
     Dates: start: 20080609, end: 20080714
  2. MULTI-VITAMIN [Concomitant]
     Indication: MEDICAL DIET
     Route: 048

REACTIONS (1)
  - PREGNANCY INDUCED HYPERTENSION [None]
